FAERS Safety Report 25660221 (Version 1)
Quarter: 2025Q3

REPORT INFORMATION
  Report Type: Spontaneous
  Country: US (occurrence: None)
  Receive Date: 20250807
  Receipt Date: 20250807
  Transmission Date: 20251020
  Serious: Yes (Hospitalization)
  Sender: FDA-CTU
  Company Number: None

PATIENT
  Age: 35 Year
  Sex: Male

DRUGS (2)
  1. TAVNEOS [Suspect]
     Active Substance: AVACOPAN
     Dosage: FREQUENCY : TWICE A DAY;?
     Route: 048
     Dates: start: 20250804
  2. TAVNEOS [Concomitant]
     Active Substance: AVACOPAN
     Dates: start: 20250804

REACTIONS (6)
  - Pneumonia [None]
  - Vasculitis [None]
  - Somnolence [None]
  - Drug intolerance [None]
  - Liver disorder [None]
  - Tuberculosis [None]

NARRATIVE: CASE EVENT DATE: 20250806
